FAERS Safety Report 7141694-X (Version None)
Quarter: 2010Q4

REPORT INFORMATION
  Report Type: 
  Country: None (occurrence: None)
  Receive Date: 20101124
  Receipt Date: 20101111
  Transmission Date: 20110411
  Serious: Yes (Other)
  Sender: FDA-Public Use
  Company Number: 011881

PATIENT
  Age: 47 Year
  Sex: Female

DRUGS (4)
  1. BUSULFEX [Suspect]
     Indication: BONE MARROW CONDITIONING REGIMEN
     Dosage: 16 MG/KG,
  2. MELPHALAN HYDROCHLORIDE [Concomitant]
  3. CYCLOSOPRIN A (CICLOSPORIN) [Concomitant]
  4. METHOTREXATE [Concomitant]

REACTIONS (1)
  - APLASIA PURE RED CELL [None]
